FAERS Safety Report 9363316 (Version 3)
Quarter: 2013Q2

REPORT INFORMATION
  Report Type: Spontaneous
  Country: US (occurrence: None)
  Receive Date: 20130620
  Receipt Date: 20130626
  Transmission Date: 20140414
  Serious: Yes (Death, Hospitalization, Other)
  Sender: FDA-Public Use
  Company Number: AUR-APL-2013-04961

PATIENT
  Age: 29 Year
  Sex: Male
  Weight: 101.6 kg

DRUGS (4)
  1. SUMATRIPTAN [Suspect]
     Indication: MIGRAINE
     Dosage: 100 MG 1 DF AS REQUIRED ONE EVERY TWO WEEKS, ORAL
     Route: 048
     Dates: start: 200906, end: 201002
  2. ADDERALL [Suspect]
     Indication: ATTENTION DEFICIT/HYPERACTIVITY DISORDER
     Dosage: 30 MG IN THE MORNING AND 25 MG IN EVENING
     Dates: start: 200906
  3. METHYLPENIDATE (METHYLPHENIDATE) [Suspect]
     Indication: PRODUCT USED FOR UNKNOWN INDICATION
     Dates: start: 2000
  4. ATOMOXETINE [Concomitant]

REACTIONS (8)
  - Pulseless electrical activity [None]
  - Cardiac arrest [None]
  - Myalgia [None]
  - Sinus tachycardia [None]
  - Coronary artery occlusion [None]
  - Syncope [None]
  - Pneumothorax [None]
  - Infarction [None]
